FAERS Safety Report 6247131-1 (Version None)
Quarter: 2009Q2

REPORT INFORMATION
  Report Type: 
  Country: None (occurrence: None)
  Receive Date: 20090624
  Receipt Date: 20090624
  Transmission Date: 20091009
  Serious: Yes (Other)
  Sender: FDA-Public Use
  Company Number: None

PATIENT
  Age: 56 Year
  Sex: Female
  Weight: 130.1823 kg

DRUGS (1)
  1. BONIVA [Suspect]
     Indication: OSTEOPOROSIS POSTMENOPAUSAL
     Dosage: 3MG ONCE EVERY 3 MONTH IV
     Route: 042
     Dates: start: 20090225, end: 20090225

REACTIONS (3)
  - CHAPPED LIPS [None]
  - CHEILITIS [None]
  - LIP EXFOLIATION [None]
